FAERS Safety Report 9835144 (Version 2)
Quarter: 2014Q1

REPORT INFORMATION
  Report Type: Spontaneous
  Country: US (occurrence: US)
  Receive Date: 20140122
  Receipt Date: 20140122
  Transmission Date: 20141002
  Serious: Yes (Other)
  Sender: FDA-Public Use
  Company Number: US-BRISTOL-MYERS SQUIBB COMPANY-19827591

PATIENT
  Age: 81 Year
  Sex: Female

DRUGS (7)
  1. ELIQUIS [Suspect]
     Indication: ATRIAL FIBRILLATION
     Route: 048
     Dates: start: 20130419, end: 20130923
  2. BABY ASPIRIN [Suspect]
  3. LASIX [Concomitant]
  4. L-THYROXINE [Concomitant]
  5. VYTORIN [Concomitant]
  6. CARVEDILOL [Concomitant]
  7. DETROL LA [Concomitant]

REACTIONS (1)
  - Gastrointestinal haemorrhage [Recovered/Resolved]
